FAERS Safety Report 11640924 (Version 1)
Quarter: 2015Q4

REPORT INFORMATION
  Report Type: Spontaneous
  Country: CN (occurrence: CN)
  Receive Date: 20151019
  Receipt Date: 20151019
  Transmission Date: 20160304
  Serious: Yes (Hospitalization)
  Sender: FDA-Public Use
  Company Number: CN-PFIZER INC-2015346929

PATIENT
  Age: 25 Year
  Sex: Female
  Weight: 45 kg

DRUGS (3)
  1. LIPITOR [Suspect]
     Active Substance: ATORVASTATIN CALCIUM
     Indication: DYSLIPIDAEMIA
     Dosage: 20 MG, 1X/DAY
     Route: 048
     Dates: start: 20150427, end: 20150504
  2. EDARAVONE [Suspect]
     Active Substance: EDARAVONE
     Indication: CEREBRAL INFARCTION
     Dosage: 30 MG, 2X/DAY
     Route: 041
     Dates: start: 20150427, end: 20150504
  3. PLAVIX [Concomitant]
     Active Substance: CLOPIDOGREL BISULFATE
     Indication: PLATELET DISORDER
     Dosage: 75 MG, 1X/DAY
     Route: 048
     Dates: start: 20150427, end: 20150504

REACTIONS (2)
  - Rash maculo-papular [Recovered/Resolved]
  - Pruritus [Recovered/Resolved]

NARRATIVE: CASE EVENT DATE: 20150502
